FAERS Safety Report 8583279-4 (Version None)
Quarter: 2012Q3

REPORT INFORMATION
  Report Type: 
  Country: None (occurrence: None)
  Receive Date: 20120809
  Receipt Date: 20120731
  Transmission Date: 20120928
  Serious: Yes (Hospitalization)
  Sender: FDA-Public Use
  Company Number: BE-B.I. PHARMACEUTICALS,INC./RIDGEFIELD-2012-BL-00453BL

PATIENT
  Sex: Male
  Weight: 97 kg

DRUGS (8)
  1. CORDARONE [Concomitant]
     Dosage: 200 MG
     Route: 048
     Dates: start: 19930101
  2. CARDIOASPIRINE [Concomitant]
     Dosage: 100 MG
     Route: 048
     Dates: start: 20091216
  3. METOPROLOL SUCCINATE [Concomitant]
     Dosage: 100 MG
     Route: 048
  4. BUMETANIDE [Concomitant]
     Dosage: 2.5 MG
     Route: 048
  5. PANTOPRAZOLE [Concomitant]
     Dosage: 80 MG
     Route: 048
  6. ALDACTONE [Concomitant]
     Dosage: 50 MG
     Route: 048
     Dates: start: 20091203
  7. METFORMIN HCL [Concomitant]
     Dosage: 1700 MG
     Route: 048
     Dates: start: 20100301
  8. PRADAXA [Suspect]
     Indication: ATRIAL FIBRILLATION
     Dosage: 300 MG
     Route: 048
     Dates: start: 20111213

REACTIONS (4)
  - INTRACARDIAC THROMBUS [None]
  - ATRIAL FIBRILLATION [None]
  - ABDOMINAL PAIN UPPER [None]
  - GASTROINTESTINAL DISORDER [None]
